FAERS Safety Report 10884717 (Version 3)
Quarter: 2015Q1

REPORT INFORMATION
  Report Type: Report from Study
  Country: JP (occurrence: JP)
  Receive Date: 20150304
  Receipt Date: 20150327
  Transmission Date: 20150721
  Serious: Yes (Death, Life-Threatening, Hospitalization)
  Sender: FDA-Public Use
  Company Number: JP-PFIZER INC-2013284166

PATIENT
  Age: 57 Year
  Sex: Female
  Weight: 51 kg

DRUGS (17)
  1. XALKORI [Suspect]
     Active Substance: CRIZOTINIB
     Dosage: 250 MG, 1X/DAY
     Route: 048
     Dates: start: 20130521, end: 20130630
  2. SENNARIDE [Concomitant]
     Active Substance: SENNOSIDES A AND B
     Dosage: 12 MG, AS NEEDED
     Route: 048
  3. URSO [Concomitant]
     Active Substance: URSODIOL
     Dosage: 100 MG, 3X/DAY
     Route: 048
     Dates: start: 20130108, end: 20130304
  4. NEXIUM [Concomitant]
     Active Substance: ESOMEPRAZOLE MAGNESIUM
     Dosage: 20 MG, 1X/DAY
     Route: 048
  5. PEGASYS [Concomitant]
     Active Substance: PEGINTERFERON ALFA-2A
     Dosage: 90 ?G, EVERY 2 WEEKS
     Route: 058
     Dates: start: 20130122
  6. BIO-THREE [Concomitant]
     Active Substance: HERBALS
     Dosage: 1 DF, 3X/DAY
     Route: 048
     Dates: start: 20121128
  7. FOLIAMIN [Concomitant]
     Active Substance: FOLIC ACID
     Dosage: 5 MG, 3X/DAY
     Route: 048
     Dates: start: 20130108
  8. TOUGHMAC E [Concomitant]
     Active Substance: AMYLASE\LIPASE\PROTEASE
     Dosage: 1 DF, 3X/DAY
     Route: 048
     Dates: start: 20121225
  9. METHYCOBAL [Concomitant]
     Active Substance: METHYLCOBALAMIN
     Dosage: 500 UG, 3X/DAY
     Route: 048
     Dates: start: 20130108
  10. URSO [Concomitant]
     Active Substance: URSODIOL
     Dosage: 200 MG, 3X/DAY
     Route: 048
     Dates: end: 20130107
  11. URSO [Concomitant]
     Active Substance: URSODIOL
     Dosage: 100 MG, 3X/DAY
     Route: 048
     Dates: start: 20130521, end: 20130729
  12. PROMAC /JPN/ [Concomitant]
     Dosage: 75 MG, 2X/DAY
     Route: 048
     Dates: start: 20130305
  13. XALKORI [Suspect]
     Active Substance: CRIZOTINIB
     Indication: NON-SMALL CELL LUNG CANCER
     Dosage: 250 MG, 2X/DAY
     Route: 048
     Dates: start: 20121105, end: 20130520
  14. LOXONIN [Concomitant]
     Active Substance: LOXOPROFEN SODIUM
     Dosage: 60 MG, AS NEEDED
     Route: 048
     Dates: end: 20121130
  15. PROMAC /JPN/ [Concomitant]
     Dosage: 75 MG, 2X/DAY
     Route: 048
     Dates: end: 20121121
  16. FERROMIA [Concomitant]
     Active Substance: FERROUS CITRATE
     Dosage: 50 MG, 2X/DAY
     Route: 048
     Dates: start: 20130108, end: 20130617
  17. NAUZELIN [Concomitant]
     Active Substance: DOMPERIDONE
     Dosage: 10 MG, 3X/DAY
     Route: 048
     Dates: start: 20130312

REACTIONS (3)
  - Disease progression [Fatal]
  - Pleural effusion [Not Recovered/Not Resolved]
  - Non-small cell lung cancer [Fatal]

NARRATIVE: CASE EVENT DATE: 20130629
